FAERS Safety Report 20644722 (Version 2)
Quarter: 2022Q2

REPORT INFORMATION
  Report Type: Spontaneous
  Country: NL (occurrence: NL)
  Receive Date: 20220328
  Receipt Date: 20220421
  Transmission Date: 20220721
  Serious: Yes (Hospitalization, Other)
  Sender: FDA-Public Use
  Company Number: NL-TEVA-2022-NL-2014923

PATIENT
  Age: 75 Year
  Sex: Female
  Weight: 89 kg

DRUGS (45)
  1. RITUXIMAB [Suspect]
     Active Substance: RITUXIMAB
     Indication: Diffuse large B-cell lymphoma stage IV
     Dosage: 375 MG/M2, EVERY 3 WEEKS
     Route: 042
     Dates: start: 20210826
  2. PREDNISONE [Suspect]
     Active Substance: PREDNISONE
     Indication: Diffuse large B-cell lymphoma stage IV
     Dosage: 100 MG, DAILY
     Route: 048
     Dates: start: 20210826, end: 20210826
  3. PREDNISONE [Suspect]
     Active Substance: PREDNISONE
     Dosage: 100 MG, DAILY
     Route: 042
     Dates: start: 20210827, end: 20210830
  4. PREDNISONE [Suspect]
     Active Substance: PREDNISONE
     Dosage: 100 MILLIGRAM DAILY;
     Route: 042
     Dates: start: 20210915, end: 20210918
  5. PREDNISONE [Suspect]
     Active Substance: PREDNISONE
     Dosage: 100 MG, DAILY
     Route: 042
     Dates: start: 20211014, end: 20211017
  6. PREDNISONE [Suspect]
     Active Substance: PREDNISONE
     Dosage: 100 MG, DAILY
     Route: 042
     Dates: start: 20211103, end: 20211106
  7. DOXORUBICIN [Suspect]
     Active Substance: DOXORUBICIN
     Indication: Diffuse large B-cell lymphoma stage IV
     Dosage: 50 MG/M2, EVERY 3 WEEKS
     Route: 042
     Dates: start: 20210826
  8. VINCRISTINE [Suspect]
     Active Substance: VINCRISTINE
     Indication: Diffuse large B-cell lymphoma stage IV
     Dosage: 2MG/M2 EVERY 3 WEEKS
     Route: 042
     Dates: start: 20210826
  9. VINCRISTINE [Suspect]
     Active Substance: VINCRISTINE
     Indication: Diffuse large B-cell lymphoma
     Dosage: 1.4 MG/M2, EVERY 3 WEEKS
     Route: 042
     Dates: start: 20210915, end: 20211216
  10. EPCORITAMAB [Suspect]
     Active Substance: EPCORITAMAB
     Indication: Diffuse large B-cell lymphoma stage IV
     Dosage: 48 MG, FREQ:4WK(C7)
     Route: 058
     Dates: start: 20210107
  11. EPCORITAMAB [Suspect]
     Active Substance: EPCORITAMAB
     Dosage: 16 MILLIGRAM DAILY; PRIMING DOSE, SINGLE
     Route: 058
     Dates: start: 20210826, end: 20210826
  12. EPCORITAMAB [Suspect]
     Active Substance: EPCORITAMAB
     Dosage: 8 MILLIGRAM DAILY; SINGLE
     Route: 058
     Dates: start: 20210901, end: 20210901
  13. EPCORITAMAB [Suspect]
     Active Substance: EPCORITAMAB
     Dosage: UNK UNK, WEEKLY
     Route: 058
     Dates: start: 20210908, end: 20211118
  14. EPCORITAMAB [Suspect]
     Active Substance: EPCORITAMAB
     Dosage: (C7)
     Route: 058
     Dates: start: 20210909, end: 20211118
  15. EPCORITAMAB [Suspect]
     Active Substance: EPCORITAMAB
     Dosage: 48 MG, WEEKLY (C5-6)
     Route: 058
     Dates: start: 20211125, end: 20211216
  16. CYCLOPHOSPHAMIDE [Suspect]
     Active Substance: CYCLOPHOSPHAMIDE
     Indication: Diffuse large B-cell lymphoma stage IV
     Dosage: 750 MG/M2, EVERY 3 WEEKS
     Route: 042
     Dates: start: 20210826
  17. DEXAMETHASONE [Suspect]
     Active Substance: DEXAMETHASONE
     Indication: Diffuse large B-cell lymphoma
     Dosage: 4 MILLIGRAM DAILY;
     Route: 037
     Dates: start: 20210915
  18. DEXAMETHASONE [Suspect]
     Active Substance: DEXAMETHASONE
     Indication: Diffuse large B-cell lymphoma stage IV
     Dosage: 4 MG, DAILY
     Route: 037
     Dates: start: 20211014, end: 20211014
  19. DEXAMETHASONE [Suspect]
     Active Substance: DEXAMETHASONE
     Dosage: 4 MG
     Route: 037
     Dates: start: 20211118, end: 20211118
  20. CYCLOPHOSPHAMIDE [Suspect]
     Active Substance: CYCLOPHOSPHAMIDE
     Indication: Diffuse large B-cell lymphoma
     Dosage: UNK
  21. DOXORUBICIN HYDROCHLORIDE [Suspect]
     Active Substance: DOXORUBICIN HYDROCHLORIDE
     Indication: Diffuse large B-cell lymphoma stage IV
     Dosage: UNK
     Route: 042
     Dates: start: 20210826
  22. PAROXETINE [Concomitant]
     Active Substance: PAROXETINE
     Dosage: UNK
     Dates: start: 20170123
  23. LEVOTHYROXINE [Concomitant]
     Active Substance: LEVOTHYROXINE
     Dosage: UNK
     Dates: start: 20180212
  24. DABIGATRAN [Concomitant]
     Active Substance: DABIGATRAN
     Dosage: UNK
     Dates: start: 20210714
  25. METOPROLOL [Concomitant]
     Active Substance: METOPROLOL
     Dosage: UNK
     Dates: start: 20210714
  26. PREDNISONE [Concomitant]
     Active Substance: PREDNISONE
     Dosage: ON 01-SEP-2021 AND 08-SEP-2021
     Route: 042
     Dates: start: 20210901
  27. PREDNISONE [Concomitant]
     Active Substance: PREDNISONE
     Dosage: 100 MG
     Route: 048
     Dates: start: 20210902, end: 20210904
  28. PREDNISONE [Concomitant]
     Active Substance: PREDNISONE
     Dosage: 100 MG
     Route: 048
     Dates: start: 20210908
  29. PREDNISONE [Concomitant]
     Active Substance: PREDNISONE
     Dosage: 100 MG
     Route: 048
     Dates: start: 20210909, end: 20210911
  30. PEGFILGRASTIM [Concomitant]
     Active Substance: PEGFILGRASTIM
     Dosage: UNK
     Dates: start: 20210915
  31. ACETAMINOPHEN [Concomitant]
     Active Substance: ACETAMINOPHEN
     Dosage: UNK
     Dates: start: 20210922
  32. DORZOLAMIDE HYDROCHLORIDE\TIMOLOL MALEATE [Concomitant]
     Active Substance: DORZOLAMIDE HYDROCHLORIDE\TIMOLOL MALEATE
     Dosage: UNK
     Dates: start: 20210929, end: 20220112
  33. BRIMONIDINE [Concomitant]
     Active Substance: BRIMONIDINE TARTRATE
     Dosage: UNK
     Dates: start: 20210929
  34. POTASSIUM CHLORIDE [Concomitant]
     Active Substance: POTASSIUM CHLORIDE
     Dosage: UNK
     Dates: start: 20210929
  35. CICLOPIROX [Concomitant]
     Active Substance: CICLOPIROX
     Dosage: UNK
     Dates: start: 20211002
  36. METOCLOPRAMIDE [Concomitant]
     Active Substance: METOCLOPRAMIDE
     Dosage: UNK
     Dates: start: 20211025, end: 20220118
  37. DIGOXIN [Concomitant]
     Active Substance: DIGOXIN
     Dosage: UNK
     Dates: start: 20211119, end: 20220112
  38. CALCIUM CARBONATE\ERGOCALCIFEROL [Concomitant]
     Active Substance: CALCIUM CARBONATE\ERGOCALCIFEROL
     Dosage: UNK
     Dates: start: 20211202
  39. NOVORAPID [Concomitant]
     Active Substance: INSULIN ASPART
     Dosage: UNK
     Dates: start: 20211202
  40. MAGNESIUM [Concomitant]
     Active Substance: MAGNESIUM
     Dosage: UNK
     Dates: start: 20211206, end: 20220106
  41. ALGELDRATE/MAGNESIUM HYDROXIDE [Concomitant]
     Dosage: UNK
     Dates: start: 20211206, end: 20220116
  42. LOPERAMIDE [Concomitant]
     Active Substance: LOPERAMIDE
     Dosage: UNK
     Dates: start: 20211207
  43. VANCOMYCIN [Concomitant]
     Active Substance: VANCOMYCIN
     Dosage: UNK
     Dates: start: 20211213, end: 20220113
  44. GRANISETRON [Concomitant]
     Active Substance: GRANISETRON
     Dosage: UNK
     Dates: start: 20211216, end: 20211216
  45. MAGNESIUM SULFATE [Concomitant]
     Active Substance: MAGNESIUM SULFATE
     Dosage: UNK
     Dates: start: 20220114, end: 20220114

REACTIONS (5)
  - Pneumonia klebsiella [Recovered/Resolved]
  - Urinary tract infection [Unknown]
  - Weight increased [Unknown]
  - Body temperature increased [Unknown]
  - Off label use [Unknown]

NARRATIVE: CASE EVENT DATE: 20210826
